FAERS Safety Report 9718677 (Version 1)
Quarter: 2013Q4

REPORT INFORMATION
  Report Type: Not Available
  Country: US (occurrence: US)
  Receive Date: 20131125
  Receipt Date: 20131125
  Transmission Date: 20140711
  Serious: Yes (Other)
  Sender: FDA-Public Use
  Company Number: US-H. LUNDBECK A/S-DKLU1091228

PATIENT
  Age: 27 Year
  Sex: Female

DRUGS (2)
  1. ONFI [Suspect]
     Indication: CONVULSION
     Dates: start: 201202
  2. ALBUTEROL [Concomitant]
     Indication: ASTHMA

REACTIONS (1)
  - Convulsion [Recovered/Resolved]
